FAERS Safety Report 7077863-7 (Version None)
Quarter: 2010Q4

REPORT INFORMATION
  Report Type: 
  Country: None (occurrence: None)
  Receive Date: 20101101
  Receipt Date: 20101026
  Transmission Date: 20110411
  Serious: Yes (Other)
  Sender: FDA-Public Use
  Company Number: US-RB-016006-10

PATIENT
  Age: 37 Year
  Sex: Female

DRUGS (3)
  1. SUBOXONE [Suspect]
     Indication: DRUG DEPENDENCE
     Dosage: TAKES 20-24 MG DAILY
     Route: 060
     Dates: start: 20090701
  2. SAPHRIS [Suspect]
     Indication: BIPOLAR DISORDER
     Route: 048
     Dates: start: 20101001, end: 20101001
  3. CELEXA [Suspect]
     Indication: BIPOLAR DISORDER
     Dosage: DOSING DETAILS UNKNOWN
     Route: 065
     Dates: start: 20101001

REACTIONS (7)
  - BALANCE DISORDER [None]
  - CONVULSION [None]
  - HEARING IMPAIRED [None]
  - INSOMNIA [None]
  - IRRITABILITY [None]
  - MALAISE [None]
  - NERVOUSNESS [None]
